FAERS Safety Report 7917249-3 (Version None)
Quarter: 2011Q4

REPORT INFORMATION
  Report Type: 
  Country: None (occurrence: None)
  Receive Date: 20111116
  Receipt Date: 20111103
  Transmission Date: 20120403
  Serious: Yes (Other)
  Sender: FDA-Public Use
  Company Number: PHHY2011US63471

PATIENT
  Sex: Male

DRUGS (6)
  1. AFINITOR [Suspect]
     Dosage: 5 MG, DAILY
     Route: 048
     Dates: end: 20111101
  2. DILANTIN [Concomitant]
  3. VIMPAT [Concomitant]
  4. TENEX [Concomitant]
  5. AFINITOR [Suspect]
     Indication: ASTROCYTOMA
     Dosage: 2.5 MG, DAILY
     Route: 048
     Dates: start: 20110821
  6. AFINITOR [Suspect]
     Indication: TUBEROUS SCLEROSIS
     Dosage: 2.5 MG, DAILY
     Route: 048
     Dates: start: 20110706

REACTIONS (9)
  - PYREXIA [None]
  - DROOLING [None]
  - DEPRESSED MOOD [None]
  - ANGER [None]
  - ORAL HERPES [None]
  - ORAL DISCOMFORT [None]
  - HEAD BANGING [None]
  - HYPOPHAGIA [None]
  - IRRITABILITY [None]
